FAERS Safety Report 20574019 (Version 8)
Quarter: 2023Q1

REPORT INFORMATION
  Report Type: Other
  Country: CA (occurrence: None)
  Receive Date: 20220309
  Receipt Date: 20230321
  Transmission Date: 20230418
  Serious: Yes (Life-Threatening, Hospitalization, Other)
  Sender: FDA-Public Use
  Company Number: CA-ROCHE-3045979

PATIENT
  Age: 49 Year
  Sex: Male
  Weight: 70.1 kg

DRUGS (41)
  1. ACTEMRA [Suspect]
     Active Substance: TOCILIZUMAB
     Indication: Rheumatoid arthritis
     Route: 042
     Dates: start: 20180925
  2. ACTEMRA [Suspect]
     Active Substance: TOCILIZUMAB
     Route: 042
     Dates: start: 20180925, end: 20181120
  3. ACTEMRA [Suspect]
     Active Substance: TOCILIZUMAB
     Route: 042
  4. ACTEMRA [Suspect]
     Active Substance: TOCILIZUMAB
     Route: 042
     Dates: start: 20210316
  5. ACTEMRA [Suspect]
     Active Substance: TOCILIZUMAB
     Route: 042
  6. ACETAMINOPHEN [Concomitant]
     Active Substance: ACETAMINOPHEN
     Route: 048
  7. ACETAMINOPHEN\OXYCODONE HYDROCHLORIDE [Concomitant]
     Active Substance: ACETAMINOPHEN\OXYCODONE HYDROCHLORIDE
     Route: 048
  8. AMLODIPINE [Concomitant]
     Active Substance: AMLODIPINE BESYLATE
     Route: 048
  9. CALCIUM CARBONATE [Concomitant]
     Active Substance: CALCIUM CARBONATE
  10. CELEBREX [Concomitant]
     Active Substance: CELECOXIB
  11. DIAZEPAM [Concomitant]
     Active Substance: DIAZEPAM
     Dosage: BEDTIME
     Route: 048
  12. DILAUDID [Concomitant]
     Active Substance: HYDROMORPHONE HYDROCHLORIDE
  13. DIMENHYDRINATE [Concomitant]
     Active Substance: DIMENHYDRINATE
     Route: 048
  14. DIPHENHYDRAMINE [Concomitant]
     Active Substance: DIPHENHYDRAMINE
     Route: 048
  15. DIVALPROEX SODIUM [Concomitant]
     Active Substance: DIVALPROEX SODIUM
  16. DULCOLAX (BISACODYL) [Concomitant]
     Active Substance: BISACODYL
     Route: 054
  17. GABAPENTIN [Concomitant]
     Active Substance: GABAPENTIN
     Route: 048
  18. GLUCAGON [Concomitant]
     Active Substance: GLUCAGON
     Route: 058
  19. GRAVOL [Concomitant]
     Active Substance: DIMENHYDRINATE
  20. INSULIN NOS [Concomitant]
     Active Substance: INSULIN NOS
  21. LACTULOSE [Concomitant]
     Active Substance: LACTULOSE
  22. LANTUS [Concomitant]
     Active Substance: INSULIN GLARGINE
  23. LEVOTHYROXINE SODIUM [Concomitant]
     Active Substance: LEVOTHYROXINE SODIUM
  24. LIPITOR [Concomitant]
     Active Substance: ATORVASTATIN CALCIUM
  25. MOXIFLOXACIN [Concomitant]
     Active Substance: MOXIFLOXACIN
  26. NOVORAPID [Concomitant]
     Active Substance: INSULIN ASPART
  27. PERCOCET [Concomitant]
     Active Substance: ACETAMINOPHEN\OXYCODONE HYDROCHLORIDE
     Dosage: 5-325 NG
  28. PREDNISONE [Concomitant]
     Active Substance: PREDNISONE
  29. QUINAPRIL [Concomitant]
     Active Substance: QUINAPRIL
     Route: 048
  30. RANITIDINE [Concomitant]
     Active Substance: RANITIDINE
  31. RIVAROXABAN [Concomitant]
     Active Substance: RIVAROXABAN
  32. ROSUVASTATIN [Concomitant]
     Active Substance: ROSUVASTATIN
  33. SENOKOT [Concomitant]
     Active Substance: SENNOSIDES
  34. SYNTHROID [Concomitant]
     Active Substance: LEVOTHYROXINE SODIUM
  35. TAMSULOSIN [Concomitant]
     Active Substance: TAMSULOSIN
  36. TEMAZEPAM [Concomitant]
     Active Substance: TEMAZEPAM
     Route: 048
  37. TESTOSTERONE [Concomitant]
     Active Substance: TESTOSTERONE
  38. VALTREX [Concomitant]
     Active Substance: VALACYCLOVIR HYDROCHLORIDE
  39. WELLBUTRIN [Concomitant]
     Active Substance: BUPROPION HYDROCHLORIDE
  40. XARELTO [Concomitant]
     Active Substance: RIVAROXABAN
  41. ZOPICLONE [Concomitant]
     Active Substance: ZOPICLONE

REACTIONS (29)
  - Arthritis bacterial [Recovered/Resolved]
  - Ulcerative keratitis [Unknown]
  - Arthropathy [Unknown]
  - Eye disorder [Unknown]
  - Carpal tunnel syndrome [Unknown]
  - Skin ulcer [Unknown]
  - Weight decreased [Unknown]
  - White blood cell count increased [Unknown]
  - Haemoglobin decreased [Unknown]
  - Bronchial wall thickening [Unknown]
  - Effusion [Unknown]
  - Rib fracture [Recovering/Resolving]
  - Eye disorder [Unknown]
  - Pain [Recovering/Resolving]
  - Genital herpes [Recovered/Resolved]
  - Infection [Unknown]
  - Arthritis bacterial [Recovered/Resolved]
  - Atelectasis [Unknown]
  - Blood glucose fluctuation [Unknown]
  - Anxiety [Unknown]
  - Insomnia [Unknown]
  - Constipation [Unknown]
  - Diabetic foot [Recovered/Resolved]
  - Leukocytosis [Unknown]
  - Arthritis bacterial [Recovered/Resolved]
  - Ulcerative keratitis [Not Recovered/Not Resolved]
  - Blindness [Unknown]
  - Weight increased [Unknown]
  - Rheumatoid arthritis [Unknown]

NARRATIVE: CASE EVENT DATE: 20181213
